FAERS Safety Report 16007525 (Version 1)
Quarter: 2019Q1

REPORT INFORMATION
  Report Type: Spontaneous
  Country: US (occurrence: US)
  Receive Date: 20190226
  Receipt Date: 20190226
  Transmission Date: 20190418
  Serious: No
  Sender: FDA-Public Use
  Company Number: US-IGSA-SR10006853

PATIENT
  Age: 65 Year
  Sex: Male
  Weight: 63 kg

DRUGS (21)
  1. FLONASE                            /00908302/ [Concomitant]
     Active Substance: MOMETASONE FUROATE
  2. PLAVIX [Concomitant]
     Active Substance: CLOPIDOGREL BISULFATE
  3. GABAPENTIN. [Concomitant]
     Active Substance: GABAPENTIN
  4. ALBUTEROL                          /00139501/ [Concomitant]
     Active Substance: ALBUTEROL
  5. VENTOLIN [Concomitant]
     Active Substance: ALBUTEROL SULFATE
  6. PROLASTIN-C [Suspect]
     Active Substance: .ALPHA.1-PROTEINASE INHIBITOR HUMAN
     Indication: ALPHA-1 ANTI-TRYPSIN DEFICIENCY
     Dosage: 3780 MG, Q.WK.
     Dates: start: 20180822
  7. GAMUNEX [Concomitant]
     Active Substance: HUMAN IMMUNOGLOBULIN G
  8. APLENZIN [Concomitant]
     Active Substance: BUPROPION HYDROBROMIDE
  9. BENADRYL [Concomitant]
     Active Substance: DIPHENHYDRAMINE HYDROCHLORIDE
  10. ALPRAZOLAM. [Concomitant]
     Active Substance: ALPRAZOLAM
  11. SYMBICORT [Concomitant]
     Active Substance: BUDESONIDE\FORMOTEROL FUMARATE DIHYDRATE
  12. ASA [Concomitant]
     Active Substance: ASPIRIN
  13. NITRO                              /00003201/ [Concomitant]
     Active Substance: NITROGLYCERIN
  14. PREDNISONE. [Concomitant]
     Active Substance: PREDNISONE
  15. FLOMAX [Concomitant]
     Active Substance: TAMSULOSIN HYDROCHLORIDE
  16. SPIRIVA [Concomitant]
     Active Substance: TIOTROPIUM BROMIDE MONOHYDRATE
  17. PEPTAMEN [Concomitant]
  18. TRAZODONE [Concomitant]
     Active Substance: TRAZODONE HYDROCHLORIDE
  19. DALIRESP [Concomitant]
     Active Substance: ROFLUMILAST
  20. TOPIRAMATE. [Concomitant]
     Active Substance: TOPIRAMATE
  21. WARFARIN [Concomitant]
     Active Substance: WARFARIN

REACTIONS (1)
  - Rash [Not Recovered/Not Resolved]

NARRATIVE: CASE EVENT DATE: 20180823
